FAERS Safety Report 16542192 (Version 1)
Quarter: 2019Q3

REPORT INFORMATION
  Report Type: Report from Study
  Country: US (occurrence: US)
  Receive Date: 20190708
  Receipt Date: 20190708
  Transmission Date: 20191004
  Serious: Yes (Hospitalization)
  Sender: FDA-Public Use
  Company Number: US-ALLERGAN-1927662US

PATIENT
  Sex: Female

DRUGS (1)
  1. ELUXADOLINE 75MG TAB (11306X) [Suspect]
     Active Substance: ELUXADOLINE
     Indication: PRODUCT USED FOR UNKNOWN INDICATION
     Dosage: 75 MG, BID

REACTIONS (2)
  - Therapy cessation [Unknown]
  - Adverse event [Unknown]
